FAERS Safety Report 4880654-6 (Version None)
Quarter: 2006Q1

REPORT INFORMATION
  Report Type: 
  Country: None (occurrence: None)
  Receive Date: 20060113
  Receipt Date: 20050317
  Transmission Date: 20060701
  Serious: Yes (Hospitalization, Disabling)
  Sender: FDA-Public Use
  Company Number: US-MERCK-0503USA03393

PATIENT
  Age: 40 Year
  Sex: Male
  Weight: 95 kg

DRUGS (4)
  1. VIOXX [Suspect]
     Indication: BACK PAIN
     Route: 048
     Dates: start: 20030601, end: 20030725
  2. VIOXX [Suspect]
     Indication: BACK INJURY
     Route: 048
     Dates: start: 20030601, end: 20030725
  3. VICODIN [Concomitant]
     Route: 065
  4. SOMA [Concomitant]
     Route: 065

REACTIONS (18)
  - BACK PAIN [None]
  - BLOOD GLUCOSE INCREASED [None]
  - COLONIC POLYP [None]
  - DEEP VEIN THROMBOSIS [None]
  - GASTROOESOPHAGEAL REFLUX DISEASE [None]
  - HAEMATOCHEZIA [None]
  - HIGH DENSITY LIPOPROTEIN DECREASED [None]
  - LOW DENSITY LIPOPROTEIN DECREASED [None]
  - MELAENA [None]
  - OESOPHAGEAL STENOSIS [None]
  - PHLEBITIS [None]
  - PRESCRIBED OVERDOSE [None]
  - PROTEIN URINE PRESENT [None]
  - RASH [None]
  - SINUS TACHYCARDIA [None]
  - SKELETAL INJURY [None]
  - THROMBOPHLEBITIS SUPERFICIAL [None]
  - UPPER GASTROINTESTINAL HAEMORRHAGE [None]
